FAERS Safety Report 19136535 (Version 2)
Quarter: 2021Q2

REPORT INFORMATION
  Report Type: Spontaneous
  Country: HR (occurrence: HR)
  Receive Date: 20210415
  Receipt Date: 20210526
  Transmission Date: 20210717
  Serious: Yes (Hospitalization, Other)
  Sender: FDA-Public Use
  Company Number: HR-JNJFOC-20210421864

PATIENT
  Age: 74 Year
  Sex: Female
  Weight: 75 kg

DRUGS (10)
  1. EDEMID [Concomitant]
     Active Substance: FUROSEMIDE
     Dosage: 250 MG
  2. SANVAL [Concomitant]
     Active Substance: ZOLPIDEM TARTRATE
  3. ENTRESTO [Concomitant]
     Active Substance: SACUBITRIL\VALSARTAN
  4. RIVAROXABAN [Suspect]
     Active Substance: RIVAROXABAN
     Indication: PRODUCT USED FOR UNKNOWN INDICATION
     Dosage: 15 MG
     Route: 048
  5. METFORMIN [Concomitant]
     Active Substance: METFORMIN HYDROCHLORIDE
     Dosage: 500 MG
  6. CONTROLOC [Concomitant]
     Active Substance: PANTOPRAZOLE SODIUM
  7. ALOPURINOL [Concomitant]
     Active Substance: ALLOPURINOL
     Dosage: 100 MG
  8. INSPRA [Concomitant]
     Active Substance: EPLERENONE
     Dosage: 50 MG
  9. BETALOC ZOK [Concomitant]
     Active Substance: METOPROLOL SUCCINATE
     Dosage: 25 MG
  10. NORMABEL [Concomitant]
     Active Substance: DIAZEPAM
     Dosage: 5 MG

REACTIONS (4)
  - Cardiac failure [Recovered/Resolved]
  - Cardiac failure [Recovered/Resolved]
  - Ventricular dysfunction [Unknown]
  - COVID-19 pneumonia [Recovered/Resolved]

NARRATIVE: CASE EVENT DATE: 202007
